FAERS Safety Report 5366897-6 (Version None)
Quarter: 2007Q2

REPORT INFORMATION
  Report Type: 
  Country: None (occurrence: None)
  Receive Date: 20070622
  Receipt Date: 20060125
  Transmission Date: 20071010
  Serious: No
  Sender: FDA-Public Use
  Company Number: US-ASTRAZENECA-2007UW01606

PATIENT
  Age: 31 Year
  Sex: Female

DRUGS (2)
  1. RHINOCORT [Suspect]
     Indication: SINUSITIS
     Route: 045
  2. HYDRALAZINE HCL [Concomitant]
     Indication: ANXIETY

REACTIONS (3)
  - ANXIETY [None]
  - FEELING JITTERY [None]
  - INSOMNIA [None]
